FAERS Safety Report 24285439 (Version 1)
Quarter: 2024Q3

REPORT INFORMATION
  Report Type: Report from Study
  Country: US (occurrence: US)
  Receive Date: 20240905
  Receipt Date: 20240905
  Transmission Date: 20241017
  Serious: Yes (Other)
  Sender: BAYER
  Company Number: US-BAYER-2024A103626

PATIENT
  Age: 69 Year
  Sex: Male
  Weight: 115.65 kg

DRUGS (24)
  1. ADEMPAS [Suspect]
     Active Substance: RIOCIGUAT
     Indication: Pulmonary arterial hypertension
     Dosage: UNK
     Dates: start: 20220209
  2. ADEMPAS [Suspect]
     Active Substance: RIOCIGUAT
     Indication: Pulmonary arterial hypertension
     Dosage: 2.5 MG, TID
     Route: 048
  3. ADEMPAS [Suspect]
     Active Substance: RIOCIGUAT
     Indication: Pulmonary arterial hypertension
     Dosage: 2.5 MG, BID
  4. ADEMPAS [Suspect]
     Active Substance: RIOCIGUAT
     Indication: Pulmonary arterial hypertension
     Dosage: 2.5 MG, TID
     Route: 048
  5. ADEMPAS [Suspect]
     Active Substance: RIOCIGUAT
     Indication: Pulmonary arterial hypertension
     Dosage: 3 MG, QD
  6. METOPROLOL TARTRATE [Suspect]
     Active Substance: METOPROLOL TARTRATE
  7. VITAMINS [Concomitant]
     Active Substance: VITAMINS
  8. ZOLOFT [Concomitant]
     Active Substance: SERTRALINE HYDROCHLORIDE
  9. PROTONIX [Concomitant]
     Active Substance: PANTOPRAZOLE SODIUM
  10. BUMETANIDE [Concomitant]
     Active Substance: BUMETANIDE
  11. SERTRALINE HYDROCHLORIDE [Concomitant]
     Active Substance: SERTRALINE HYDROCHLORIDE
  12. ELIQUIS [Concomitant]
     Active Substance: APIXABAN
  13. FISH OIL [Concomitant]
     Active Substance: FISH OIL
  14. ALLOPURINOL [Concomitant]
     Active Substance: ALLOPURINOL
  15. OPSUMIT [Concomitant]
     Active Substance: MACITENTAN
  16. PREDNISONE [Concomitant]
     Active Substance: PREDNISONE
  17. OXYGEN [Concomitant]
     Active Substance: OXYGEN
  18. IRON [Concomitant]
     Active Substance: IRON
  19. CHONDROITIN SULFATE A\GLUCOSAMINE [Concomitant]
     Active Substance: CHONDROITIN SULFATE A\GLUCOSAMINE
  20. TIMOPTIC [Concomitant]
     Active Substance: TIMOLOL MALEATE
  21. TORSEMIDE [Concomitant]
     Active Substance: TORSEMIDE
  22. ATROVENT HFA [Concomitant]
     Active Substance: IPRATROPIUM BROMIDE
  23. CIPROFLOXACIN HYDROCHLORIDE [Concomitant]
     Active Substance: CIPROFLOXACIN HYDROCHLORIDE
  24. LOVASTATIN [Concomitant]
     Active Substance: LOVASTATIN

REACTIONS (6)
  - Renal disorder [None]
  - Renal impairment [None]
  - Hypotension [None]
  - Product prescribing error [None]
  - Blood pressure fluctuation [None]
  - Dysphonia [None]

NARRATIVE: CASE EVENT DATE: 20240828
